FAERS Safety Report 6508201-3 (Version None)
Quarter: 2009Q4

REPORT INFORMATION
  Report Type: 
  Country: None (occurrence: None)
  Receive Date: 20091221
  Receipt Date: 20081208
  Transmission Date: 20100525
  Serious: No
  Sender: FDA-Public Use
  Company Number: US-ASTRAZENECA-2008UW27236

PATIENT
  Sex: Female
  Weight: 64.9 kg

DRUGS (4)
  1. CRESTOR [Suspect]
     Indication: BLOOD CHOLESTEROL
     Dosage: 10 MG
     Route: 048
     Dates: start: 20081117
  2. LISINOPRIL [Concomitant]
  3. METFORMIN HCL [Concomitant]
  4. INSULIN [Concomitant]

REACTIONS (1)
  - ALOPECIA [None]
